FAERS Safety Report 6496989-X (Version None)
Quarter: 2009Q4

REPORT INFORMATION
  Report Type: 
  Country: None (occurrence: None)
  Receive Date: 20091215
  Receipt Date: 20081219
  Transmission Date: 20100525
  Serious: No
  Sender: FDA-Public Use
  Company Number: A0759201A

PATIENT
  Age: 74 Year
  Sex: Male

DRUGS (1)
  1. AVODART [Suspect]
     Route: 048

REACTIONS (4)
  - BLADDER DISORDER [None]
  - DRUG INEFFECTIVE [None]
  - INSOMNIA [None]
  - NOCTURIA [None]
